FAERS Safety Report 12999243 (Version 1)
Quarter: 2016Q4

REPORT INFORMATION
  Report Type: Spontaneous
  Country: DE (occurrence: DE)
  Receive Date: 20161205
  Receipt Date: 20161205
  Transmission Date: 20170207
  Serious: Yes (Other)
  Sender: FDA-Public Use
  Company Number: DE-DRREDDYS-GER/GER/16/0085100

PATIENT
  Age: 49 Year
  Sex: Male

DRUGS (4)
  1. OLANZAPINE. [Suspect]
     Active Substance: OLANZAPINE
     Indication: PRODUCT USED FOR UNKNOWN INDICATION
     Route: 048
     Dates: start: 20160327, end: 20160328
  2. NITOMAN [Concomitant]
     Active Substance: TETRABENAZINE
     Indication: PRODUCT USED FOR UNKNOWN INDICATION
     Route: 048
     Dates: start: 20160301
  3. OLANZAPINE. [Suspect]
     Active Substance: OLANZAPINE
     Route: 048
     Dates: start: 20160329
  4. OLANZAPINE. [Suspect]
     Active Substance: OLANZAPINE
     Route: 048
     Dates: start: 20160330, end: 20160405

REACTIONS (10)
  - Tardive dyskinesia [Recovering/Resolving]
  - Hyperkinesia [Unknown]
  - Adverse event [Unknown]
  - Sleep disorder [Unknown]
  - Dizziness [Unknown]
  - Dystonia [Unknown]
  - Muscle strain [Unknown]
  - Shoulder deformity [Unknown]
  - Torticollis [Unknown]
  - Job dissatisfaction [Unknown]

NARRATIVE: CASE EVENT DATE: 20160328
